FAERS Safety Report 11051120 (Version 1)
Quarter: 2015Q2

REPORT INFORMATION
  Report Type: Spontaneous
  Country: US (occurrence: None)
  Receive Date: 20150420
  Receipt Date: 20150420
  Transmission Date: 20150821
  Serious: Yes (Other)
  Sender: FDA-Public Use
  Company Number: None

PATIENT
  Age: 60 Year
  Sex: Female
  Weight: 81.65 kg

DRUGS (2)
  1. CRESTOR [Suspect]
     Active Substance: ROSUVASTATIN CALCIUM
     Indication: BLOOD CHOLESTEROL INCREASED
     Route: 048
     Dates: start: 20121215, end: 20150419
  2. BISOPROLOL HCTZ [Concomitant]

REACTIONS (4)
  - Fatigue [None]
  - Asthenia [None]
  - Sinusitis [None]
  - Alopecia [None]

NARRATIVE: CASE EVENT DATE: 20121215
